FAERS Safety Report 10589584 (Version 2)
Quarter: 2014Q4

REPORT INFORMATION
  Report Type: Spontaneous
  Country: GB (occurrence: None)
  Receive Date: 20141114
  Receipt Date: 20141124
  Transmission Date: 20150529
  Serious: Yes (Hospitalization)
  Sender: FDA-Public Use
  Company Number: 2014MPI01432

PATIENT
  Sex: Male
  Weight: 76.5 kg

DRUGS (4)
  1. DACARBAZINE (DACARBAZINE) INJECTION [Suspect]
     Active Substance: DACARBAZINE
     Indication: HODGKIN^S DISEASE
     Route: 042
     Dates: start: 20140826, end: 20141020
  2. DOXORUBICIN (DOXORUBICIN) INJECTION [Suspect]
     Active Substance: DOXORUBICIN
     Indication: HODGKIN^S DISEASE
     Route: 042
     Dates: start: 20140826, end: 20141020
  3. VINBLASTINE (VINBLASTINE SULFATE) INJECTION [Suspect]
     Active Substance: VINBLASTINE
     Indication: HODGKIN^S DISEASE
     Route: 042
     Dates: start: 20140826, end: 20141020
  4. BRENTUXIMAB VEDOTIN (BRENTUXIMAB VEDOTIN) INJECTION [Suspect]
     Active Substance: BRENTUXIMAB VEDOTIN
     Indication: HODGKIN^S DISEASE
     Route: 042
     Dates: start: 20140826, end: 20141020

REACTIONS (8)
  - Pyrexia [None]
  - C-reactive protein increased [None]
  - Blood magnesium decreased [None]
  - Sepsis [None]
  - Heart rate increased [None]
  - Red blood cell count decreased [None]
  - Malaise [None]
  - Blood creatinine decreased [None]

NARRATIVE: CASE EVENT DATE: 20141029
